FAERS Safety Report 5365903-2 (Version None)
Quarter: 2007Q2

REPORT INFORMATION
  Report Type: 
  Country: None (occurrence: None)
  Receive Date: 20070621
  Receipt Date: 20070618
  Transmission Date: 20071010
  Serious: Yes (Life-Threatening)
  Sender: FDA-Public Use
  Company Number: FR-MERCK-0706FRA00062

PATIENT
  Age: 72 Year
  Sex: Male

DRUGS (5)
  1. CANCIDAS [Suspect]
     Indication: CANDIDA PNEUMONIA
     Route: 042
     Dates: start: 20070613, end: 20070613
  2. CANCIDAS [Suspect]
     Route: 042
     Dates: start: 20070614
  3. CANCIDAS [Suspect]
     Indication: URINARY TRACT INFECTION
     Route: 042
     Dates: start: 20070613, end: 20070613
  4. CANCIDAS [Suspect]
     Route: 042
     Dates: start: 20070614
  5. CORTICOSTEROIDS (UNSPECIFIED) [Concomitant]
     Route: 065

REACTIONS (2)
  - ANURIA [None]
  - RENAL FAILURE ACUTE [None]
